FAERS Safety Report 8842511 (Version 1)
Quarter: 2012Q4

REPORT INFORMATION
  Report Type: Spontaneous
  Country: US (occurrence: None)
  Receive Date: 20121015
  Receipt Date: 20121015
  Transmission Date: 20130627
  Serious: Yes (Hospitalization, Disabling)
  Sender: FDA-Public Use
  Company Number: None

PATIENT
  Age: 47 Year
  Sex: Male
  Weight: 68.04 kg

DRUGS (1)
  1. THEOPHYLLINE [Suspect]
     Indication: COPD
     Dates: start: 20110319, end: 20110326

REACTIONS (1)
  - Urinary retention [None]
